FAERS Safety Report 5272814-X (Version None)
Quarter: 2007Q1

REPORT INFORMATION
  Report Type: 
  Country: None (occurrence: None)
  Receive Date: 20070322
  Receipt Date: 20070313
  Transmission Date: 20070707
  Serious: Yes (Other)
  Sender: FDA-Public Use
  Company Number: US-ROCHE-487272

PATIENT
  Age: 79 Year
  Sex: Female
  Weight: 44.9 kg

DRUGS (7)
  1. BONIVA [Suspect]
     Indication: OSTEOPOROSIS
     Route: 065
     Dates: start: 20050715, end: 20060715
  2. BONIVA [Suspect]
     Route: 065
     Dates: start: 20060715, end: 20061215
  3. CALCIUM NOS [Concomitant]
     Indication: DRUG USE FOR UNKNOWN INDICATION
  4. VITAMINS NOS [Concomitant]
     Indication: DRUG USE FOR UNKNOWN INDICATION
  5. LEVOXYL [Concomitant]
     Indication: HYPOTHYROIDISM
  6. OCULAR EYE DROPS [Concomitant]
     Indication: GLAUCOMA
  7. UNSPECIFIED MEDICATIONS [Concomitant]
     Indication: HYPERTENSION

REACTIONS (4)
  - ABDOMINAL DISCOMFORT [None]
  - DYSPEPSIA [None]
  - GASTRIC ULCER [None]
  - PANCREATITIS [None]
